FAERS Safety Report 7437412-8 (Version None)
Quarter: 2011Q2

REPORT INFORMATION
  Report Type: 
  Country: None (occurrence: None)
  Receive Date: 20110426
  Receipt Date: 20110126
  Transmission Date: 20111010
  Serious: No
  Sender: FDA-Public Use
  Company Number: PHHY2010JP77477

PATIENT
  Sex: Male

DRUGS (11)
  1. PREDNISOLONE [Concomitant]
     Dosage: 3 MG, UNK
  2. AMN107 [Suspect]
     Dosage: 400 MG, QD
     Route: 048
     Dates: start: 20100614, end: 20100711
  3. LUPRAC [Concomitant]
     Dosage: 4 MG, QD
     Route: 048
     Dates: start: 20091024
  4. BONALON [Concomitant]
     Dosage: 35 MG, QD
     Route: 048
     Dates: start: 20091013, end: 20101118
  5. DASEN [Concomitant]
     Dosage: 15 MG, QD
     Route: 048
     Dates: start: 20100524, end: 20100530
  6. MUCOSOLVAN [Concomitant]
     Dosage: 45 MG, QD
     Route: 048
     Dates: start: 20100524, end: 20100530
  7. AMN107 [Suspect]
     Indication: CHRONIC MYELOID LEUKAEMIA
     Dosage: 800 MG, QD
     Route: 048
     Dates: start: 20100524, end: 20100530
  8. PREDNISOLONE [Concomitant]
     Dosage: 2 MG, UNK
     Dates: start: 20100906
  9. PREDNISOLONE [Concomitant]
     Dosage: 4 MG, UNK
  10. AMN107 [Suspect]
     Dosage: 400 MG, DAILY
     Route: 048
     Dates: start: 20101101
  11. AMN107 [Suspect]
     Dosage: 800 MG, QD
     Route: 048
     Dates: start: 20100712, end: 20101017

REACTIONS (3)
  - RASH ERYTHEMATOUS [None]
  - BLOOD PHOSPHORUS DECREASED [None]
  - GAMMA-GLUTAMYLTRANSFERASE INCREASED [None]
